FAERS Safety Report 8353254-3 (Version None)
Quarter: 2012Q2

REPORT INFORMATION
  Report Type: 
  Country: None (occurrence: None)
  Receive Date: 20120511
  Receipt Date: 20120504
  Transmission Date: 20120825
  Serious: Yes (Other)
  Sender: FDA-Public Use
  Company Number: US-BAYER-201032940NA

PATIENT
  Sex: Female
  Weight: 64 kg

DRUGS (24)
  1. RESTORIL [Concomitant]
  2. FERLECIT [Concomitant]
  3. FERROUS SULFATE TAB [Concomitant]
  4. PARICALCITOL [Concomitant]
  5. MAGNEVIST [Suspect]
     Indication: NUCLEAR MAGNETIC RESONANCE IMAGING
  6. OMNISCAN [Suspect]
     Indication: NUCLEAR MAGNETIC RESONANCE IMAGING
  7. VITAMIN B6 [Concomitant]
  8. GADOLINIUM IN UNSPECIFIED DRUG [Suspect]
     Indication: NUCLEAR MAGNETIC RESONANCE IMAGING
     Dosage: UNK
     Dates: start: 20051020, end: 20051020
  9. ZANTAC [Concomitant]
  10. RENVELA [Concomitant]
  11. VICODIN [Concomitant]
  12. DIPHENHYDRAMINE HCL [Concomitant]
  13. RENAGEL [Concomitant]
  14. ASPIRIN [Concomitant]
  15. NEPHROCAPS [Concomitant]
  16. SENSIPAR [Concomitant]
  17. EPOGEN [Concomitant]
  18. DOXERCALCIFEROL [Concomitant]
  19. PHOSLO [Concomitant]
  20. FOSAMAX [Concomitant]
  21. HECTOROL [Concomitant]
  22. LISINOPRIL [Concomitant]
  23. GADOLINIUM IN UNSPECIFIED DRUG [Suspect]
     Indication: NUCLEAR MAGNETIC RESONANCE IMAGING SPINAL
     Dosage: UNK
     Dates: start: 20040106, end: 20040106
  24. MIDODRINE HYDROCHLORIDE [Concomitant]

REACTIONS (19)
  - SKIN HYPERPIGMENTATION [None]
  - SKIN EXFOLIATION [None]
  - NEPHROGENIC SYSTEMIC FIBROSIS [None]
  - PAIN [None]
  - PAIN IN EXTREMITY [None]
  - ARTHRALGIA [None]
  - MUSCULOSKELETAL STIFFNESS [None]
  - SKIN TIGHTNESS [None]
  - SKIN FIBROSIS [None]
  - JOINT SWELLING [None]
  - JOINT STIFFNESS [None]
  - SKIN INDURATION [None]
  - GAIT DISTURBANCE [None]
  - LOCALISED OEDEMA [None]
  - SKIN PLAQUE [None]
  - SKIN HYPERTROPHY [None]
  - RASH MACULAR [None]
  - DERMATITIS [None]
  - RASH PAPULAR [None]
